FAERS Safety Report 10982062 (Version 2)
Quarter: 2015Q2

REPORT INFORMATION
  Report Type: Spontaneous
  Country: TR (occurrence: TR)
  Receive Date: 20150403
  Receipt Date: 20150424
  Transmission Date: 20150821
  Serious: Yes (Hospitalization, Other)
  Sender: FDA-Public Use
  Company Number: TR-PAR PHARMACEUTICAL, INC-2015SCPR010454

PATIENT

DRUGS (4)
  1. ALPRAZOLAM. [Suspect]
     Active Substance: ALPRAZOLAM
     Indication: ANXIETY DISORDER
     Dosage: 1 MG, / DAY
     Route: 048
  2. ALPRAZOLAM. [Suspect]
     Active Substance: ALPRAZOLAM
     Indication: INSOMNIA
     Dosage: 3 MG, / DAY
     Route: 048
  3. TRAMADOL [Suspect]
     Active Substance: TRAMADOL
     Dosage: 400 MG, / DAY
     Route: 048
  4. TRAMADOL [Suspect]
     Active Substance: TRAMADOL
     Indication: PAIN
     Dosage: 200 MG, / DAY
     Route: 048

REACTIONS (10)
  - Anxiety [None]
  - Mental status changes [Recovered/Resolved]
  - Hypopnoea [Recovered/Resolved]
  - Brain oedema [Recovered/Resolved]
  - Loss of consciousness [Recovered/Resolved]
  - Ejection fraction decreased [Recovered/Resolved]
  - Intentional product misuse [Unknown]
  - Sleep disorder [None]
  - Acute kidney injury [Recovered/Resolved]
  - Rales [Recovered/Resolved]
